FAERS Safety Report 15728819 (Version 1)
Quarter: 2018Q4

REPORT INFORMATION
  Report Type: Spontaneous
  Country: JP (occurrence: JP)
  Receive Date: 20181217
  Receipt Date: 20181217
  Transmission Date: 20190205
  Serious: Yes (Death, Other)
  Sender: FDA-Public Use
  Company Number: PHHY2018JP186208

PATIENT
  Sex: Male

DRUGS (2)
  1. MELPHALAN. [Suspect]
     Active Substance: MELPHALAN
     Indication: ACUTE MEGAKARYOCYTIC LEUKAEMIA
     Dosage: 140 MG/M2, UNK
     Route: 065
  2. FLUDARABINE [Suspect]
     Active Substance: FLUDARABINE PHOSPHATE
     Indication: ACUTE MEGAKARYOCYTIC LEUKAEMIA
     Dosage: 125 MG/M2, UNK
     Route: 065

REACTIONS (4)
  - Pericardial effusion [Unknown]
  - Malignant neoplasm progression [Fatal]
  - Acute megakaryocytic leukaemia [Fatal]
  - Pleural effusion [Unknown]
